FAERS Safety Report 5246849-7 (Version None)
Quarter: 2007Q1

REPORT INFORMATION
  Report Type: 
  Country: None (occurrence: None)
  Receive Date: 20070226
  Receipt Date: 20070219
  Transmission Date: 20070707
  Serious: Yes (Life-Threatening, Hospitalization, Other)
  Sender: FDA-Public Use
  Company Number: GB-PFIZER INC-2007013578

PATIENT
  Age: 73 Year
  Sex: Female

DRUGS (4)
  1. ARTHROTEC [Suspect]
     Indication: INFLAMMATORY PAIN
     Route: 048
     Dates: start: 20070131, end: 20070201
  2. NAPROXEN [Concomitant]
     Indication: PAIN
     Route: 048
  3. PARACETAMOL [Concomitant]
     Indication: PAIN
     Route: 048
  4. TRIMETHOPRIM [Concomitant]
     Route: 048
     Dates: start: 20070123, end: 20070128

REACTIONS (6)
  - DYSPNOEA [None]
  - HYPERSENSITIVITY [None]
  - MUSCLE RIGIDITY [None]
  - ORAL PRURITUS [None]
  - SALIVARY HYPERSECRETION [None]
  - SWOLLEN TONGUE [None]
